FAERS Safety Report 24748871 (Version 2)
Quarter: 2024Q4

REPORT INFORMATION
  Report Type: Spontaneous
  Country: JP (occurrence: JP)
  Receive Date: 20241218
  Receipt Date: 20241223
  Transmission Date: 20250115
  Serious: Yes (Other)
  Sender: BAYER HEALTHCARE PHARMACEUTICALS INC.
  Company Number: JP-BAYER-2024A178826

PATIENT
  Age: 5 Decade
  Sex: Female

DRUGS (1)
  1. MIRENA [Suspect]
     Active Substance: LEVONORGESTREL
     Indication: Heavy menstrual bleeding
     Dosage: 20?G/DAY
     Route: 015
     Dates: start: 2020, end: 20241217

REACTIONS (3)
  - Device breakage [Not Recovered/Not Resolved]
  - Complication of device removal [None]
  - Device difficult to use [None]

NARRATIVE: CASE EVENT DATE: 20241217
